FAERS Safety Report 5503322-6 (Version None)
Quarter: 2007Q4

REPORT INFORMATION
  Report Type: 
  Country: None (occurrence: None)
  Receive Date: 20071031
  Receipt Date: 20071030
  Transmission Date: 20080405
  Serious: No
  Sender: FDA-Public Use
  Company Number: US-BOEHRINGER INGELHEIM PHARMACEUTICALS, INC.-2007-BP-21965BP

PATIENT
  Sex: Male

DRUGS (1)
  1. FLOMAX [Suspect]
     Indication: URINARY INCONTINENCE
     Route: 048
     Dates: start: 20070501, end: 20070904

REACTIONS (3)
  - APATHY [None]
  - ASTHENIA [None]
  - BLOOD PRESSURE DECREASED [None]
